FAERS Safety Report 12239902 (Version 4)
Quarter: 2017Q4

REPORT INFORMATION
  Report Type: Spontaneous
  Country: US (occurrence: US)
  Receive Date: 20160405
  Receipt Date: 20171026
  Transmission Date: 20180320
  Serious: Yes (Death, Hospitalization, Other)
  Sender: FDA-Public Use
  Company Number: US-ELI_LILLY_AND_COMPANY-US201603009141

PATIENT
  Sex: Female
  Weight: 83.4 kg

DRUGS (1)
  1. HUMALOG [Suspect]
     Active Substance: INSULIN LISPRO
     Indication: PRODUCT USED FOR UNKNOWN INDICATION
     Dosage: UNK, UNKNOWN
     Route: 065
     Dates: start: 201410, end: 2015

REACTIONS (6)
  - Throat tightness [Recovered/Resolved]
  - Pruritus generalised [Recovered/Resolved]
  - Hepatic failure [Fatal]
  - Hepatic cirrhosis [Unknown]
  - Diabetes mellitus inadequate control [Unknown]
  - Rash [Unknown]
